FAERS Safety Report 26111931 (Version 3)
Quarter: 2025Q4

REPORT INFORMATION
  Report Type: Spontaneous
  Country: US (occurrence: US)
  Receive Date: 20251202
  Receipt Date: 20251217
  Transmission Date: 20260119
  Serious: No
  Sender: INSUD PHARMA
  Company Number: US-INSUD PHARMA-2511US09698

PATIENT

DRUGS (1)
  1. TESTOSTERONE CYPIONATE [Suspect]
     Active Substance: TESTOSTERONE CYPIONATE
     Indication: Androgen deficiency
     Dosage: 1 ML AS DIRECTED EVERY WEDNESDAY
     Route: 030
     Dates: start: 20250924, end: 202511

REACTIONS (6)
  - Injection site mass [Recovering/Resolving]
  - Product with quality issue administered [Unknown]
  - Product deposit [Unknown]
  - Product colour issue [Unknown]
  - Product use issue [Unknown]
  - Product physical consistency issue [Unknown]

NARRATIVE: CASE EVENT DATE: 20250101
